FAERS Safety Report 8807342 (Version 1)
Quarter: 2012Q4

REPORT INFORMATION
  Report Type: 
  Country: US (occurrence: US)
  Receive Date: 20120925
  Receipt Date: 20120925
  Transmission Date: 20130627
  Serious: No
  Sender: FDA-Public Use
  Company Number: US-ABBOTT-12P-163-0958523-00

PATIENT
  Sex: Female

DRUGS (1)
  1. VICODIN HP 10 MG/660 MG [Suspect]
     Indication: PAIN
     Dosage: 10/660 milligram
     Route: 048

REACTIONS (2)
  - Drug ineffective [Not Recovered/Not Resolved]
  - Pain [Not Recovered/Not Resolved]
